FAERS Safety Report 21700199 (Version 1)
Quarter: 2022Q4

REPORT INFORMATION
  Report Type: Spontaneous
  Country: US (occurrence: US)
  Receive Date: 20221208
  Receipt Date: 20221208
  Transmission Date: 20230113
  Serious: No
  Sender: FDA-Public Use
  Company Number: US-002147023-NVSC2022US283948

PATIENT
  Sex: Male

DRUGS (1)
  1. TRIESENCE [Suspect]
     Active Substance: TRIAMCINOLONE ACETONIDE
     Indication: Macular oedema
     Dosage: UNK
     Route: 065

REACTIONS (2)
  - Drug ineffective [Unknown]
  - Product use in unapproved indication [Unknown]
